FAERS Safety Report 11191710 (Version 1)
Quarter: 2015Q2

REPORT INFORMATION
  Report Type: Spontaneous
  Country: US (occurrence: None)
  Receive Date: 20150603
  Receipt Date: 20150603
  Transmission Date: 20150821
  Serious: No
  Sender: FDA-Public Use
  Company Number: 2015TASUS000710

PATIENT
  Age: 78 Year
  Sex: Female
  Weight: 70.3 kg

DRUGS (12)
  1. LAMOTRIGINE (LAMOTRIGINE) [Concomitant]
     Active Substance: LAMOTRIGINE
  2. MULTIVITAMIN (VITAMINS NOS) [Concomitant]
     Active Substance: VITAMINS
  3. CITALOPRAM (CITALOPRAM HYDROCHLORIDE) [Concomitant]
  4. ASPIRIN (ACETYLSALICYLIC ACID) [Concomitant]
     Active Substance: ASPIRIN
  5. CLONAZEPAM (CLONAZEPAM) [Concomitant]
     Active Substance: CLONAZEPAM
  6. HETLIOZ [Suspect]
     Active Substance: TASIMELTEON
     Indication: CIRCADIAN RHYTHM SLEEP DISORDER
     Route: 048
     Dates: start: 2015
  7. METOPROLOL (METOPROLOL TARTRATE) [Concomitant]
     Active Substance: METOPROLOL TARTRATE
  8. NAMENDA [Concomitant]
     Active Substance: MEMANTINE HYDROCHLORIDE
  9. IRON (IRON) [Concomitant]
     Active Substance: IRON
  10. LEVOTHYROXINE SODIUM (LEVOTHYROXINE SODIUM) [Concomitant]
  11. CARBIDOPA (CARBIDOPA) , 25/100 [Concomitant]
  12. AMANTADINE (AMANTADINE HYDROCHLORIDE) [Concomitant]

REACTIONS (5)
  - Cough [None]
  - Dysphagia [None]
  - Wrong technique in drug usage process [None]
  - Hypersomnia [None]
  - Constipation [None]
